FAERS Safety Report 11544660 (Version 4)
Quarter: 2017Q3

REPORT INFORMATION
  Report Type: Report from Study
  Country: JP (occurrence: JP)
  Receive Date: 20150924
  Receipt Date: 20170703
  Transmission Date: 20171127
  Serious: Yes (Hospitalization, Other)
  Sender: FDA-Public Use
  Company Number: JP-ASTELLAS-2009JP001723

PATIENT
  Age: 31 Year
  Sex: Female
  Weight: 43 kg

DRUGS (76)
  1. TACROLIMUS. [Suspect]
     Active Substance: TACROLIMUS
     Indication: LUPUS NEPHRITIS
     Route: 048
     Dates: start: 20070514, end: 20120926
  2. PREDNISOLONE. [Suspect]
     Active Substance: PREDNISOLONE
     Indication: LUPUS NEPHRITIS
     Route: 048
     Dates: end: 20070805
  3. PREDNISOLONE. [Suspect]
     Active Substance: PREDNISOLONE
     Route: 048
     Dates: start: 20090615, end: 20101226
  4. PREDNISOLONE. [Suspect]
     Active Substance: PREDNISOLONE
     Route: 048
     Dates: start: 20101227, end: 20110123
  5. ZITHROMAC [Concomitant]
     Active Substance: AZITHROMYCIN DIHYDRATE
     Indication: BRONCHITIS
     Route: 048
     Dates: start: 20071227, end: 20071229
  6. ALDOMET                            /00000103/ [Concomitant]
     Indication: HYPERTENSION
     Route: 048
     Dates: start: 20090824, end: 20090913
  7. ZITHROMAC [Concomitant]
     Active Substance: AZITHROMYCIN DIHYDRATE
     Indication: SINUSITIS
     Route: 048
     Dates: start: 20110207, end: 20110207
  8. RULID [Concomitant]
     Active Substance: ROXITHROMYCIN
     Indication: ASTHMA
     Route: 048
     Dates: start: 20110314, end: 20110411
  9. ADOAIR [Concomitant]
     Active Substance: FLUTICASONE PROPIONATE\SALMETEROL XINAFOATE
     Indication: ASTHMA
     Route: 055
     Dates: start: 20110314, end: 20110605
  10. PETROLATUM. [Concomitant]
     Active Substance: PETROLATUM
     Indication: PRURITUS GENERALISED
     Dosage: UNK UNK, UNKNOWN FREQ.
     Route: 061
     Dates: start: 20110207, end: 20110502
  11. AZATHIOPRINE. [Concomitant]
     Active Substance: AZATHIOPRINE
     Indication: LUPUS NEPHRITIS
     Route: 048
     Dates: end: 20070528
  12. LIPITOR [Concomitant]
     Active Substance: ATORVASTATIN CALCIUM
     Route: 048
     Dates: start: 20090514
  13. METHYCOBAL [Concomitant]
     Active Substance: METHYLCOBALAMIN
     Indication: TREMOR
     Route: 048
     Dates: start: 20070903, end: 20071209
  14. CRAVIT [Concomitant]
     Active Substance: LEVOFLOXACIN
     Indication: UPPER RESPIRATORY TRACT INFLAMMATION
     Route: 048
     Dates: start: 20081222, end: 20081226
  15. MUCODYNE [Concomitant]
     Active Substance: CARBOCYSTEINE
     Indication: BRONCHITIS
     Route: 048
     Dates: start: 20110606, end: 20110721
  16. RESPLEN [Concomitant]
     Active Substance: EPRAZINONE
     Indication: UPPER RESPIRATORY TRACT INFLAMMATION
     Route: 048
     Dates: start: 20081222, end: 20081226
  17. ORADOL                             /00093302/ [Concomitant]
     Indication: UPPER RESPIRATORY TRACT INFLAMMATION
     Route: 048
     Dates: start: 20081222, end: 20081228
  18. VALTREX [Concomitant]
     Active Substance: VALACYCLOVIR HYDROCHLORIDE
     Indication: HERPES ZOSTER
     Dosage: UNK UNK, UNKNOWN FREQ.
     Route: 048
  19. CLARITIN REDITABS [Concomitant]
     Active Substance: LORATADINE
     Indication: SEASONAL ALLERGY
     Route: 048
     Dates: start: 20110207, end: 20110313
  20. OMEPRAL                            /00661201/ [Concomitant]
     Active Substance: OMEPRAZOLE
     Indication: PROPHYLAXIS
     Route: 048
     Dates: start: 20091015
  21. PROMAC                             /01312301/ [Concomitant]
     Active Substance: POLAPREZINC
     Indication: ZINC DEFICIENCY
     Route: 048
     Dates: start: 20110606, end: 20120325
  22. IMURAN [Concomitant]
     Active Substance: AZATHIOPRINE
     Route: 048
     Dates: start: 20121105
  23. PREDNISOLONE. [Suspect]
     Active Substance: PREDNISOLONE
     Route: 048
     Dates: start: 20110922, end: 20120222
  24. PREDNISOLONE. [Suspect]
     Active Substance: PREDNISOLONE
     Route: 048
     Dates: start: 20120223, end: 20120325
  25. PREDNISOLONE. [Suspect]
     Active Substance: PREDNISOLONE
     Route: 048
     Dates: start: 20120723
  26. AZATHIOPRINE. [Concomitant]
     Active Substance: AZATHIOPRINE
     Route: 048
     Dates: start: 20070528, end: 20070611
  27. NU-LOTAN [Concomitant]
     Active Substance: LOSARTAN POTASSIUM
     Indication: PRODUCT USED FOR UNKNOWN INDICATION
     Route: 048
     Dates: end: 20110921
  28. FOSAMAC [Concomitant]
     Active Substance: ALENDRONATE SODIUM
     Route: 048
     Dates: start: 20101227, end: 20120125
  29. MUCODYNE [Concomitant]
     Active Substance: CARBOCYSTEINE
     Indication: UPPER RESPIRATORY TRACT INFLAMMATION
     Route: 048
     Dates: start: 20081222, end: 20081226
  30. IMURAN [Concomitant]
     Active Substance: AZATHIOPRINE
     Indication: LUPUS NEPHRITIS
     Route: 048
     Dates: start: 20120927, end: 20121104
  31. PREDNISOLONE. [Suspect]
     Active Substance: PREDNISOLONE
     Route: 048
     Dates: start: 20081010, end: 20090614
  32. PREDNISOLONE. [Suspect]
     Active Substance: PREDNISOLONE
     Route: 048
     Dates: start: 20110502, end: 20110921
  33. COMELIAN [Concomitant]
     Active Substance: DILAZEP
     Indication: LUPUS NEPHRITIS
     Route: 048
  34. FOSAMAC [Concomitant]
     Active Substance: ALENDRONATE SODIUM
     Indication: PROPHYLAXIS
     Route: 048
     Dates: start: 20070806, end: 20070903
  35. MUCODYNE [Concomitant]
     Active Substance: CARBOCYSTEINE
     Indication: BRONCHITIS
     Route: 048
     Dates: start: 20071227, end: 20071231
  36. MUCODYNE [Concomitant]
     Active Substance: CARBOCYSTEINE
     Indication: SINUSITIS
     Route: 048
     Dates: start: 20100128, end: 20100206
  37. MUCODYNE [Concomitant]
     Active Substance: CARBOCYSTEINE
     Route: 048
     Dates: start: 20120423, end: 20120426
  38. MEPTIN AIR [Concomitant]
     Active Substance: PROCATEROL HYDROCHLORIDE
     Indication: BRONCHITIS
     Route: 055
     Dates: start: 20071227, end: 20071231
  39. VALTREX [Concomitant]
     Active Substance: VALACYCLOVIR HYDROCHLORIDE
     Route: 048
     Dates: start: 20101227, end: 20101230
  40. FLUITRAN [Concomitant]
     Active Substance: TRICHLORMETHIAZIDE
     Indication: OEDEMA
     Route: 048
     Dates: start: 20110221
  41. OXAROL [Concomitant]
     Active Substance: MAXACALCITOL
     Indication: SKIN PAPILLOMA
     Dosage: UNK UNK, UNKNOWN FREQ.
     Route: 061
     Dates: start: 20110502, end: 20110606
  42. LULICON [Concomitant]
     Active Substance: LULICONAZOLE
     Indication: BODY TINEA
     Dosage: UNK UNK, UNKNOWN FREQ.
     Route: 061
     Dates: start: 20110502, end: 20110606
  43. LIPITOR [Concomitant]
     Active Substance: ATORVASTATIN CALCIUM
     Indication: PRODUCT USED FOR UNKNOWN INDICATION
     Route: 048
     Dates: end: 20090513
  44. NAUZELIN [Concomitant]
     Active Substance: DOMPERIDONE
     Indication: GASTROENTERITIS VIRAL
     Route: 048
     Dates: start: 20071217, end: 20071223
  45. MUCODYNE [Concomitant]
     Active Substance: CARBOCYSTEINE
     Indication: PHARYNGITIS
     Route: 048
     Dates: start: 20110823, end: 20110828
  46. THEO-DUR [Concomitant]
     Active Substance: THEOPHYLLINE ANHYDROUS
     Indication: BRONCHITIS
     Route: 048
     Dates: start: 20071227, end: 20080102
  47. CALONAL [Concomitant]
     Active Substance: ACETAMINOPHEN
     Indication: PHARYNGITIS
     Route: 048
     Dates: start: 20110823, end: 20110901
  48. PREDNISOLONE. [Suspect]
     Active Substance: PREDNISOLONE
     Route: 048
     Dates: start: 20110124, end: 20110501
  49. PREDNISOLONE. [Suspect]
     Active Substance: PREDNISOLONE
     Route: 048
     Dates: start: 20120326, end: 20120722
  50. AZATHIOPRINE. [Concomitant]
     Active Substance: AZATHIOPRINE
     Route: 048
     Dates: start: 20070611, end: 20070709
  51. ENTERONON R [Concomitant]
     Indication: GASTROENTERITIS VIRAL
     Route: 048
     Dates: start: 20071217, end: 20071221
  52. RESPLEN [Concomitant]
     Active Substance: EPRAZINONE
     Indication: BRONCHITIS
     Route: 048
     Dates: start: 20071227, end: 20071231
  53. VALTREX [Concomitant]
     Active Substance: VALACYCLOVIR HYDROCHLORIDE
     Route: 048
     Dates: start: 20120326, end: 20120330
  54. ADALAT [Concomitant]
     Active Substance: NIFEDIPINE
     Indication: HYPERTENSION
     Route: 048
     Dates: start: 20090824, end: 20090913
  55. HOKUNALIN                          /00654901/ [Concomitant]
     Active Substance: TULOBUTEROL
     Indication: ASTHMA
     Route: 062
     Dates: start: 20101227, end: 20110124
  56. NEO-MINOPHAGEN C [Concomitant]
     Active Substance: AMMONIUM GLYCYRRHIZATE
     Indication: PRURITUS GENERALISED
     Route: 065
     Dates: start: 20110207, end: 20110207
  57. THEOLONG [Concomitant]
     Active Substance: THEOPHYLLINE ANHYDROUS
     Indication: ASTHMA
     Route: 048
     Dates: start: 20110502, end: 20110605
  58. AZUNOL                             /00317302/ [Concomitant]
     Indication: GLOSSITIS
     Dosage: UNK, UNKNOWN FREQ.
     Route: 061
  59. CRAVIT [Concomitant]
     Active Substance: LEVOFLOXACIN
     Indication: PHARYNGITIS
     Route: 048
     Dates: start: 20110823, end: 20110830
  60. ALFAROL [Concomitant]
     Active Substance: ALFACALCIDOL
     Indication: PRODUCT USED FOR UNKNOWN INDICATION
     Dosage: 0.25 ?G, ONCE DAILY
     Route: 048
     Dates: start: 20080724, end: 20090513
  61. ONEALFA [Concomitant]
     Active Substance: ALFACALCIDOL
     Indication: PRODUCT USED FOR UNKNOWN INDICATION
     Dosage: 0.5 ?G, ONCE DAILY
     Route: 048
     Dates: start: 20090514
  62. CLARITIN REDITABS [Concomitant]
     Active Substance: LORATADINE
     Indication: PRURITUS GENERALISED
  63. FLAVITAN [Concomitant]
     Active Substance: FLAVIN ADENINE DINUCLEOTIDE
     Indication: GLOSSITIS
     Route: 048
     Dates: start: 20110207, end: 20110605
  64. SENNA [Concomitant]
     Active Substance: SENNA LEAF\SENNOSIDES\SENNOSIDES A AND B
     Indication: CONSTIPATION
     Route: 048
     Dates: start: 20090129, end: 20110502
  65. OMEPRAL                            /00661201/ [Concomitant]
     Active Substance: OMEPRAZOLE
     Indication: GASTRITIS
     Route: 048
     Dates: start: 20090129, end: 20090513
  66. ROCEPHIN [Concomitant]
     Active Substance: CEFTRIAXONE SODIUM
     Indication: PHARYNGITIS
     Route: 065
     Dates: start: 20110823, end: 20110825
  67. OLMETEC [Concomitant]
     Active Substance: OLMESARTAN MEDOXOMIL
     Indication: HYPERTENSION
     Route: 048
     Dates: start: 20110922
  68. PREDNISOLONE. [Suspect]
     Active Substance: PREDNISOLONE
     Route: 048
     Dates: start: 20070806, end: 20081009
  69. BREDININ [Concomitant]
     Active Substance: MIZORIBINE
     Indication: LUPUS NEPHRITIS
     Route: 048
     Dates: end: 20070528
  70. SELBEX [Concomitant]
     Active Substance: TEPRENONE
     Indication: PROPHYLAXIS
     Route: 048
     Dates: end: 20110605
  71. CRAVIT [Concomitant]
     Active Substance: LEVOFLOXACIN
     Indication: GASTROENTERITIS VIRAL
     Route: 048
     Dates: start: 20071217, end: 20071221
  72. ZITHROMAC [Concomitant]
     Active Substance: AZITHROMYCIN DIHYDRATE
     Indication: SINUSITIS
     Route: 048
     Dates: start: 20100128, end: 20100130
  73. COIX SEED EXTRACT [Concomitant]
     Indication: SKIN PAPILLOMA
     Dosage: UNK UNK, UNKNOWN FREQ.
     Route: 048
     Dates: start: 20100128
  74. OXAROL [Concomitant]
     Active Substance: MAXACALCITOL
     Dosage: UNK UNK, UNKNOWN FREQ.
     Route: 061
     Dates: start: 20121011, end: 20121105
  75. LULICON [Concomitant]
     Active Substance: LULICONAZOLE
     Indication: TINEA PEDIS
  76. EURAX [Concomitant]
     Active Substance: CROTAMITON
     Indication: PRURITUS GENERALISED
     Dosage: UNK, UNKNOWN FREQ.
     Route: 061
     Dates: start: 20110207, end: 20110502

REACTIONS (29)
  - Pruritus generalised [Recovering/Resolving]
  - Alopecia [Recovering/Resolving]
  - Bronchitis [Recovered/Resolved]
  - Dyspepsia [Recovering/Resolving]
  - Body tinea [Recovering/Resolving]
  - Hypertension [Recovered/Resolved]
  - Tremor [Recovered/Resolved]
  - Hypertension [Recovering/Resolving]
  - Oedema [Recovering/Resolving]
  - Bronchitis [Recovering/Resolving]
  - Herpes zoster [Recovered/Resolved]
  - Sinusitis [Recovered/Resolved]
  - Seasonal allergy [Recovering/Resolving]
  - Glossitis [Recovered/Resolved]
  - Zinc deficiency [Recovering/Resolving]
  - Asthma [Recovering/Resolving]
  - Hyperuricaemia [Recovered/Resolved]
  - Headache [Recovered/Resolved]
  - Skin papilloma [Recovered/Resolved]
  - Tinea pedis [Recovering/Resolving]
  - Lower limb fracture [Recovered/Resolved]
  - Constipation [Recovering/Resolving]
  - Gastroenteritis viral [Recovered/Resolved]
  - Oral candidiasis [Recovering/Resolving]
  - Pharyngitis [Recovering/Resolving]
  - Upper respiratory tract inflammation [Recovered/Resolved]
  - Gastrooesophageal reflux disease [Recovering/Resolving]
  - Constipation [Recovering/Resolving]
  - Gastritis [Recovering/Resolving]

NARRATIVE: CASE EVENT DATE: 20070618
